FAERS Safety Report 8145672-3 (Version None)
Quarter: 2012Q1

REPORT INFORMATION
  Report Type: 
  Country: None (occurrence: None)
  Receive Date: 20120217
  Receipt Date: 20110304
  Transmission Date: 20120608
  Serious: No
  Sender: FDA-Public Use
  Company Number: US-ALLERGAN-1103152US

PATIENT
  Age: 25 Year
  Sex: Female

DRUGS (1)
  1. TAZORAC [Suspect]
     Indication: ACNE
     Dosage: SINGLE
     Route: 061
     Dates: start: 20110201, end: 20110218

REACTIONS (1)
  - AMENORRHOEA [None]
